FAERS Safety Report 6148694-7 (Version None)
Quarter: 2009Q2

REPORT INFORMATION
  Report Type: 
  Country: None (occurrence: None)
  Receive Date: 20090408
  Receipt Date: 20090331
  Transmission Date: 20091009
  Serious: Yes (Other)
  Sender: FDA-Public Use
  Company Number: CN-GILEAD-2009-0021238

PATIENT
  Age: 20 Year
  Sex: Male

DRUGS (3)
  1. HEPSERA [Suspect]
     Indication: HEPATITIS B
  2. LAMIVUDINE [Suspect]
     Indication: HEPATITIS B
  3. TELBIVUDINE [Suspect]
     Indication: HEPATITIS B

REACTIONS (2)
  - HEPATITIS B DNA INCREASED [None]
  - VIRAL MUTATION IDENTIFIED [None]
